FAERS Safety Report 25421974 (Version 1)
Quarter: 2025Q2

REPORT INFORMATION
  Report Type: Report from Study
  Country: US (occurrence: US)
  Receive Date: 20250611
  Receipt Date: 20250611
  Transmission Date: 20250716
  Serious: No
  Sender: ACADIA PHARMACEUTICALS
  Company Number: US-ACADIA PHARMACEUTICALS INC.-ACA-2025-PIM-006742

PATIENT
  Sex: Male

DRUGS (3)
  1. NUPLAZID [Suspect]
     Active Substance: PIMAVANSERIN TARTRATE
     Indication: Parkinson^s disease
     Dosage: 34 MILLIGRAM, QD
     Route: 048
     Dates: start: 20240911
  2. GOCOVRI [Concomitant]
     Active Substance: AMANTADINE
  3. LINZESS [Concomitant]
     Active Substance: LINACLOTIDE

REACTIONS (4)
  - Diarrhoea [Unknown]
  - Flatulence [Unknown]
  - Condition aggravated [Unknown]
  - Constipation [Unknown]
